FAERS Safety Report 6266510-X (Version None)
Quarter: 2009Q3

REPORT INFORMATION
  Report Type: 
  Country: None (occurrence: None)
  Receive Date: 20090710
  Receipt Date: 20090629
  Transmission Date: 20100115
  Serious: Yes (Hospitalization)
  Sender: FDA-Public Use
  Company Number: 2009SP014207

PATIENT
  Sex: Female
  Weight: 2.5 kg

DRUGS (5)
  1. NASONEX [Suspect]
     Indication: DRUG USE FOR UNKNOWN INDICATION
     Dosage: ; TRPL
     Route: 064
  2. REBIF [Suspect]
     Indication: MULTIPLE SCLEROSIS
     Dosage: ;TRPL
     Route: 064
     Dates: start: 20050523, end: 20080619
  3. UNSPECIFIED PAIN PATCH [Suspect]
     Indication: PAIN
     Dosage: TRPL
     Route: 064
  4. NEXIUM [Suspect]
     Indication: GASTROOESOPHAGEAL REFLUX DISEASE
     Dosage: TRPL
     Route: 064
  5. VITAMIN TAB [Suspect]
     Indication: DRUG USE FOR UNKNOWN INDICATION
     Dosage: TRPL
     Route: 064

REACTIONS (2)
  - MATERNAL DRUGS AFFECTING FOETUS [None]
  - PLATELET COUNT DECREASED [None]
